FAERS Safety Report 4395257-X (Version None)
Quarter: 2004Q3

REPORT INFORMATION
  Report Type: 
  Country: None (occurrence: None)
  Receive Date: 20040706
  Receipt Date: 20040622
  Transmission Date: 20050211
  Serious: Yes (Other)
  Sender: FDA-Public Use
  Company Number: 2004220404IN

PATIENT
  Age: 38 Year
  Sex: Male

DRUGS (4)
  1. SOLU-MEDROL [Suspect]
     Dosage: IV
     Route: 042
  2. DELTA-CORTEF [Suspect]
     Dosage: 30 MG, QD, TAPERED TO 12.5 MG QD
  3. CYCLOSPORINE [Suspect]
     Dosage: SEE IMAGE
  4. AZATHIOPRINE [Suspect]
     Dosage: 50 MG, QD

REACTIONS (8)
  - BLOOD CREATININE INCREASED [None]
  - CULTURE URINE POSITIVE [None]
  - ESCHERICHIA INFECTION [None]
  - HAEMATURIA [None]
  - INFECTION [None]
  - POST PROCEDURAL HAEMORRHAGE [None]
  - PYREXIA [None]
  - THERAPY NON-RESPONDER [None]
